FAERS Safety Report 8531256-1 (Version None)
Quarter: 2012Q3

REPORT INFORMATION
  Report Type: 
  Country: None (occurrence: None)
  Receive Date: 20120710
  Receipt Date: 20120629
  Transmission Date: 20120928
  Serious: Yes (Hospitalization)
  Sender: FDA-Public Use
  Company Number: AUR-APL-2012-02511

PATIENT
  Age: 48 Year
  Sex: Male
  Weight: 86.08 kg

DRUGS (18)
  1. PAROXETINE HYDROCHLORIDE [Suspect]
     Indication: POST-TRAUMATIC STRESS DISORDER
     Dosage: 40 MG (40 MG,1 IN 1 D),ORAL
     Route: 048
     Dates: start: 20120309
  2. ZIPRASIDONE HCL [Suspect]
     Indication: POST-TRAUMATIC STRESS DISORDER
     Dosage: 40 MG (20 MG,2 IN 1 D),ORAL ; 40 MG (20 MG,2 IN 1 D)
     Route: 048
     Dates: start: 20120430, end: 20120502
  3. ZIPRASIDONE HCL [Suspect]
     Indication: POST-TRAUMATIC STRESS DISORDER
     Dosage: 40 MG (20 MG,2 IN 1 D),ORAL ; 40 MG (20 MG,2 IN 1 D)
     Route: 048
     Dates: start: 20120427, end: 20120427
  4. GABAPENTIN [Concomitant]
  5. ATROPINE [Concomitant]
  6. CLOTRIMAZOLE [Concomitant]
  7. THIAMINE HCL [Concomitant]
  8. DEXTROMETHORPHAN (DEXTROMETHORPHAN) [Concomitant]
  9. HYDROCORTONE [Concomitant]
  10. GUAIFENESIN [Concomitant]
  11. MULTIVITAMIN [Concomitant]
  12. ACETAMINOPHEN [Concomitant]
  13. AMITRIPTYLINE HCL [Concomitant]
  14. OMEPRAZOLE [Concomitant]
  15. TRAZODONE HCL [Concomitant]
  16. ACAMPROSATE CALCIUM [Concomitant]
  17. DILTIAZEM [Concomitant]
  18. HYDROCODONE BITARTRATE [Concomitant]

REACTIONS (6)
  - DRUG RESISTANCE [None]
  - DEPRESSION [None]
  - CONDITION AGGRAVATED [None]
  - HOMICIDAL IDEATION [None]
  - SUICIDAL IDEATION [None]
  - ALCOHOL ABUSE [None]
